FAERS Safety Report 10227657 (Version 1)
Quarter: 2014Q2

REPORT INFORMATION
  Report Type: Spontaneous
  Country: US (occurrence: US)
  Receive Date: 20140610
  Receipt Date: 20140610
  Transmission Date: 20141212
  Serious: Yes (Hospitalization)
  Sender: FDA-Public Use
  Company Number: US-BAYER-2014-082558

PATIENT
  Age: 4 Day
  Sex: 0

DRUGS (2)
  1. FINACEA [Suspect]
     Indication: ACNE
     Dosage: UNK UNK, BID
     Dates: start: 201301, end: 201401
  2. FINACEA [Suspect]
     Indication: ACNE
     Dosage: UNK UNK, BID
     Dates: start: 201301, end: 201401

REACTIONS (3)
  - Jaundice [Recovered/Resolved]
  - Blood bilirubin abnormal [None]
  - Foetal exposure timing unspecified [None]
